FAERS Safety Report 14267254 (Version 3)
Quarter: 2017Q4

REPORT INFORMATION
  Report Type: Spontaneous
  Country: US (occurrence: US)
  Receive Date: 20171211
  Receipt Date: 20171221
  Transmission Date: 20180321
  Serious: No
  Sender: FDA-Public Use
  Company Number: US-PFIZER INC-2017526347

PATIENT

DRUGS (1)
  1. MENEST [Suspect]
     Active Substance: ESTROGENS, ESTERIFIED
     Dosage: 1.25 MG, UNK

REACTIONS (3)
  - Allergic reaction to excipient [Unknown]
  - Bladder pain [Unknown]
  - Intentional product use issue [Unknown]
